FAERS Safety Report 4305059-8 (Version None)
Quarter: 2004Q1

REPORT INFORMATION
  Report Type: 
  Country: None (occurrence: None)
  Receive Date: 20040225
  Receipt Date: 20040225
  Transmission Date: 20041129
  Serious: No
  Sender: FDA-Public Use
  Company Number: None

PATIENT
  Age: 63 Year
  Sex: Male
  Weight: 46.2669 kg

DRUGS (5)
  1. CISPLATIN [Suspect]
     Indication: OESOPHAGEAL SQUAMOUS CELL CARCINOMA
     Dosage: 105 MG IV X 1
     Route: 042
     Dates: start: 20030429
  2. FLUOROURACIL [Suspect]
     Dosage: 30 MG IV
     Route: 042
     Dates: start: 20030430, end: 20030503
  3. DEXAMETHASONE [Concomitant]
  4. ZOLIPIDEM [Concomitant]
  5. PERCOCET [Concomitant]

REACTIONS (2)
  - BLOOD SODIUM DECREASED [None]
  - INAPPROPRIATE ANTIDIURETIC HORMONE SECRETION [None]
